FAERS Safety Report 8956320 (Version 2)
Quarter: 2013Q1

REPORT INFORMATION
  Report Type: Spontaneous
  Country: FR (occurrence: FR)
  Receive Date: 20121210
  Receipt Date: 20130308
  Transmission Date: 20140127
  Serious: Yes (Hospitalization, Other)
  Sender: FDA-Public Use
  Company Number: FR-ELI_LILLY_AND_COMPANY-FR201211009015

PATIENT
  Age: 71 Year
  Sex: Female

DRUGS (4)
  1. FORSTEO [Suspect]
     Indication: OSTEOPOROSIS
     Dosage: 20 UG, QD
     Route: 058
     Dates: start: 20120417, end: 20120731
  2. FORSTEO [Suspect]
     Dosage: 20 UG, QD
     Route: 058
  3. FUROSEMIDE [Concomitant]
     Dosage: UNK, UNKNOWN
     Route: 065
  4. PREVISCAN [Concomitant]
     Dosage: UNK, UNKNOWN
     Route: 065

REACTIONS (5)
  - Pulmonary embolism [Recovered/Resolved]
  - Abdominal pain [Recovered/Resolved]
  - Eye infection [Recovering/Resolving]
  - Dyspnoea [Recovered/Resolved]
  - Weight increased [Not Recovered/Not Resolved]
